FAERS Safety Report 4546273-6 (Version None)
Quarter: 2005Q1

REPORT INFORMATION
  Report Type: 
  Country: None (occurrence: None)
  Receive Date: 20050103
  Receipt Date: 20041213
  Transmission Date: 20050727
  Serious: Yes (Other)
  Sender: FDA-Public Use
  Company Number: US_0412109083

PATIENT
  Age: 5 Month
  Sex: Female

DRUGS (2)
  1. VINCRISTINE SULFATE [Suspect]
     Indication: NEUROBLASTOMA
     Dates: start: 20020309
  2. CYCLOPHOSPHAMIDE [Concomitant]

REACTIONS (1)
  - GASTROENTERITIS SALMONELLA [None]
